FAERS Safety Report 15702207 (Version 8)
Quarter: 2019Q2

REPORT INFORMATION
  Report Type: Spontaneous
  Country: US (occurrence: US)
  Receive Date: 20181209
  Receipt Date: 20190502
  Transmission Date: 20190711
  Serious: Yes (Hospitalization, Other)
  Sender: FDA-Public Use
  Company Number: US-BRISTOL-MYERS SQUIBB COMPANY-BMS-2018-115491

PATIENT
  Sex: Female
  Weight: 103.86 kg

DRUGS (1)
  1. ORENCIA [Suspect]
     Active Substance: ABATACEPT
     Indication: RHEUMATOID ARTHRITIS
     Dosage: 125 MG, QWK
     Route: 058
     Dates: start: 201811

REACTIONS (5)
  - Lymphoedema [Unknown]
  - Localised infection [Unknown]
  - Cellulitis [Unknown]
  - Sinusitis [Unknown]
  - Malaise [Unknown]
